FAERS Safety Report 7753705-9 (Version None)
Quarter: 2011Q3

REPORT INFORMATION
  Report Type: 
  Country: None (occurrence: None)
  Receive Date: 20110915
  Receipt Date: 20110915
  Transmission Date: 20111222
  Serious: Yes (Other)
  Sender: FDA-Public Use
  Company Number: None

PATIENT
  Sex: Female

DRUGS (1)
  1. ALENDRONATE SODIUM [Suspect]
     Indication: OSTEOPOROSIS
     Dosage: ONE TABLET ONLY
     Route: 048
     Dates: start: 20110911, end: 20110911

REACTIONS (7)
  - DIARRHOEA [None]
  - ABDOMINAL PAIN UPPER [None]
  - CHEST PAIN [None]
  - GASTROOESOPHAGEAL REFLUX DISEASE [None]
  - POISONING [None]
  - PAIN [None]
  - MYALGIA [None]
